FAERS Safety Report 8502605-5 (Version None)
Quarter: 2012Q3

REPORT INFORMATION
  Report Type: 
  Country: None (occurrence: None)
  Receive Date: 20120711
  Receipt Date: 20120709
  Transmission Date: 20120928
  Serious: Yes (Hospitalization, Disabling, Other)
  Sender: FDA-Public Use
  Company Number: US-PFIZER INC-2011077320

PATIENT
  Sex: Female
  Weight: 65.76 kg

DRUGS (5)
  1. NEXIUM [Concomitant]
     Indication: ABDOMINAL DISCOMFORT
     Dosage: UNK
  2. ZOLOFT [Suspect]
     Indication: DEPRESSION
     Dosage: 150 MG, DAILY
  3. CELEBREX [Suspect]
     Dosage: 200 MG, DAILY
  4. CELEBREX [Suspect]
     Indication: ARTHRITIS
     Dosage: 100 MG, UNK
     Dates: start: 20080101
  5. NEXIUM [Concomitant]
     Indication: GASTRITIS
     Dosage: 40 MG, 2X/DAY

REACTIONS (9)
  - EMPHYSEMA [None]
  - GENERAL PHYSICAL HEALTH DETERIORATION [None]
  - SPONDYLITIS [None]
  - SPLENOMEGALY [None]
  - CARDIAC DISORDER [None]
  - NAUSEA [None]
  - HEPATOMEGALY [None]
  - ARTHRITIS [None]
  - HEPATIC MASS [None]
